FAERS Safety Report 9314388 (Version 2)
Quarter: 2015Q2

REPORT INFORMATION
  Report Type: Report from Study
  Country: GB (occurrence: GB)
  Receive Date: 20130529
  Receipt Date: 20150515
  Transmission Date: 20150821
  Serious: Yes (Hospitalization)
  Sender: FDA-Public Use
  Company Number: GB-ROCHE-1228657

PATIENT
  Age: 64 Year
  Sex: Male

DRUGS (6)
  1. BEVACIZUMAB [Suspect]
     Active Substance: BEVACIZUMAB
     Indication: GASTRIC CANCER
     Dosage: DATE OF MOST RECENT ADMINISTRATION: 11/NOV/2011
     Route: 042
     Dates: start: 20110915
  2. DIGOXIN. [Concomitant]
     Active Substance: DIGOXIN
     Route: 048
  3. CISPLATIN. [Suspect]
     Active Substance: CISPLATIN
     Indication: GASTRIC CANCER
     Dosage: DATE OF MOST RECENT ADMINISTRATION: 11/NOV/2011
     Route: 042
     Dates: start: 20110915
  4. PARACETAMOL [Concomitant]
     Active Substance: ACETAMINOPHEN
     Route: 048
     Dates: start: 20120125
  5. EPIRUBICIN [Suspect]
     Active Substance: EPIRUBICIN
     Indication: GASTRIC CANCER
     Dosage: DATE OF MOST RECENT ADMINISTRATION: 11/NOV/2011
     Route: 042
     Dates: start: 20110915
  6. CAPECITABINE. [Suspect]
     Active Substance: CAPECITABINE
     Indication: GASTRIC CANCER
     Dosage: DATE OF MOST RECENT ADMINISTRATION: 15/SEP/2011
     Route: 048
     Dates: start: 20110915

REACTIONS (1)
  - Anastomotic leak [Recovered/Resolved]

NARRATIVE: CASE EVENT DATE: 20120131
